FAERS Safety Report 6879480-8 (Version None)
Quarter: 2010Q3

REPORT INFORMATION
  Report Type: 
  Country: None (occurrence: None)
  Receive Date: 20100728
  Receipt Date: 20100720
  Transmission Date: 20110219
  Serious: Yes (Hospitalization)
  Sender: FDA-Public Use
  Company Number: GXKR2010IT08067

PATIENT
  Age: 59 Year
  Sex: Male

DRUGS (6)
  1. ATORVASTATIN (NGX) [Interacting]
     Indication: DYSLIPIDAEMIA
     Dosage: 40 MG, DAILY
  2. CLARITHROMYCIN [Suspect]
     Indication: LUNG INFECTION
     Dosage: 500 MG/DAY
  3. INSULIN LISPRO [Concomitant]
  4. INSULIN GLARGINE [Concomitant]
  5. RAMIPRIL [Concomitant]
     Dosage: 5 MG, DAILY
  6. AMLODIPINE [Concomitant]
     Dosage: 10 MG, DAILY

REACTIONS (8)
  - ATAXIA [None]
  - DRUG INTERACTION [None]
  - MONONEUROPATHY [None]
  - MUSCULAR WEAKNESS [None]
  - ORTHOSIS USER [None]
  - PHYSIOTHERAPY [None]
  - RENAL IMPAIRMENT [None]
  - RHABDOMYOLYSIS [None]
